FAERS Safety Report 6083610-8 (Version None)
Quarter: 2009Q1

REPORT INFORMATION
  Report Type: 
  Country: None (occurrence: None)
  Receive Date: 20090219
  Receipt Date: 20090217
  Transmission Date: 20090719
  Serious: Yes (Death)
  Sender: FDA-Public Use
  Company Number: FR-BRISTOL-MYERS SQUIBB COMPANY-14508295

PATIENT
  Age: 62 Year
  Sex: Female

DRUGS (2)
  1. TAXOL [Suspect]
     Indication: BREAST CANCER
     Route: 042
     Dates: start: 20080415
  2. AVASTIN [Suspect]

REACTIONS (1)
  - DISSEMINATED INTRAVASCULAR COAGULATION [None]
